FAERS Safety Report 15366173 (Version 2)
Quarter: 2019Q4

REPORT INFORMATION
  Report Type: Spontaneous
  Country: IT (occurrence: IT)
  Receive Date: 20180910
  Receipt Date: 20191202
  Transmission Date: 20200122
  Serious: Yes (Hospitalization)
  Sender: FDA-Public Use
  Company Number: IT-SAMSUNG BIOEPIS-SB-2018-11098

PATIENT
  Age: 77 Year
  Sex: Female

DRUGS (1)
  1. INFLIXIMAB [Suspect]
     Active Substance: INFLIXIMAB
     Indication: COLITIS ULCERATIVE
     Dosage: LYOPHILISED POWDER
     Route: 042

REACTIONS (3)
  - Treatment failure [Unknown]
  - Colitis ulcerative [Unknown]
  - Intestinal obstruction [Unknown]
